FAERS Safety Report 7458056-8 (Version None)
Quarter: 2011Q2

REPORT INFORMATION
  Report Type: 
  Country: None (occurrence: None)
  Receive Date: 20110504
  Receipt Date: 20110428
  Transmission Date: 20111010
  Serious: Yes (Other)
  Sender: FDA-Public Use
  Company Number: FR-PFIZER INC-2011091322

PATIENT
  Age: 79 Year
  Sex: Female

DRUGS (7)
  1. LOXEN LP [Suspect]
     Indication: HYPERTENSION
     Dosage: 50 MG, UNK
     Route: 048
  2. ALLOPURINOL [Suspect]
     Dosage: UNK
  3. LODOZ [Suspect]
  4. PRAZOSIN HCL [Suspect]
  5. TEMERIT [Suspect]
  6. MEDIATOR [Suspect]
     Indication: BLOOD GLUCOSE INCREASED
     Dosage: UNK
     Route: 048
     Dates: start: 20080117, end: 20091001
  7. COAPROVEL [Suspect]
     Indication: HYPERTENSION
     Dosage: 25MG/300MG
     Route: 048

REACTIONS (1)
  - AORTIC VALVE DISEASE [None]
